FAERS Safety Report 6622182-3 (Version None)
Quarter: 2010Q1

REPORT INFORMATION
  Report Type: 
  Country: None (occurrence: None)
  Receive Date: 20100309
  Receipt Date: 20100223
  Transmission Date: 20100710
  Serious: Yes (Other)
  Sender: FDA-Public Use
  Company Number: IN-MYLANLABS-2010S1002899

PATIENT
  Age: 3 Month
  Sex: Male

DRUGS (4)
  1. DIGOXIN [Suspect]
     Indication: CARDIAC FAILURE CONGESTIVE
  2. FUROSEMIDE [Suspect]
     Indication: CARDIAC FAILURE CONGESTIVE
  3. SPIRONOLACTONE [Suspect]
     Indication: CARDIAC FAILURE CONGESTIVE
  4. ENALAPRIL MALEATE [Suspect]
     Indication: CARDIAC FAILURE CONGESTIVE

REACTIONS (2)
  - RENAL FAILURE [None]
  - THERAPEUTIC AGENT TOXICITY [None]
